FAERS Safety Report 25776433 (Version 1)
Quarter: 2025Q3

REPORT INFORMATION
  Report Type: Spontaneous
  Country: US (occurrence: US)
  Receive Date: 20250909
  Receipt Date: 20250909
  Transmission Date: 20251020
  Serious: No
  Sender: DOMPE FARMACEUTICI
  Company Number: US-FARMAPROD-202408-3085

PATIENT
  Age: 78 Year
  Sex: Male

DRUGS (25)
  1. OXERVATE [Suspect]
     Active Substance: CENEGERMIN-BKBJ
     Indication: Neurotrophic keratopathy
     Route: 047
     Dates: start: 20240825
  2. MELATONIN [Concomitant]
     Active Substance: MELATONIN
  3. MILK OF MAGNESIA [Concomitant]
     Active Substance: MAGNESIUM HYDROXIDE
  4. LOPERAMIDE [Concomitant]
     Active Substance: LOPERAMIDE
  5. IVIZIA [Concomitant]
     Active Substance: POVIDONE
  6. ASPIRIN [Concomitant]
     Active Substance: ASPIRIN
  7. ASPIRIN [Concomitant]
     Active Substance: ASPIRIN
  8. TYLENOL EXTRA STRENGTH [Concomitant]
     Active Substance: ACETAMINOPHEN
  9. METHOCARBAMOL [Concomitant]
     Active Substance: METHOCARBAMOL
  10. CARAFATE [Concomitant]
     Active Substance: SUCRALFATE
  11. AZELASTINE HYDROCHLORIDE [Concomitant]
     Active Substance: AZELASTINE HYDROCHLORIDE
  12. FLUTICASONE PROPIONATE [Concomitant]
     Active Substance: FLUTICASONE PROPIONATE
  13. HYDROXYZINE HYDROCHLORIDE [Concomitant]
     Active Substance: HYDROXYZINE HYDROCHLORIDE
  14. VITAMIN D3 [Concomitant]
     Active Substance: CHOLECALCIFEROL
  15. HUMALOG KWIKPEN [Concomitant]
     Active Substance: INSULIN LISPRO
  16. LISINOPRIL [Concomitant]
     Active Substance: LISINOPRIL
  17. EZETIMIBE [Concomitant]
     Active Substance: EZETIMIBE
  18. FAMOTIDINE [Concomitant]
     Active Substance: FAMOTIDINE
  19. FENOFIBRATE [Concomitant]
     Active Substance: FENOFIBRATE
  20. MONTELUKAST SODIUM [Concomitant]
     Active Substance: MONTELUKAST SODIUM
  21. OMEPRAZOLE [Concomitant]
     Active Substance: OMEPRAZOLE
  22. TAMSULOSIN HYDROCHLORIDE [Concomitant]
     Active Substance: TAMSULOSIN HYDROCHLORIDE
  23. OMEGA-3 ACIDS [Concomitant]
     Active Substance: OMEGA-3 FATTY ACIDS
  24. QUININE SULFATE [Concomitant]
     Active Substance: QUININE SULFATE
  25. ZZZ-QUIL [Concomitant]

REACTIONS (14)
  - Off label use [Unknown]
  - Nausea [Not Recovered/Not Resolved]
  - Tremor [Unknown]
  - Accidental overdose [Unknown]
  - Stomatitis [Not Recovered/Not Resolved]
  - Lip pruritus [Not Recovered/Not Resolved]
  - Dizziness [Not Recovered/Not Resolved]
  - Glossitis [Not Recovered/Not Resolved]
  - Sinus disorder [Not Recovered/Not Resolved]
  - Hypoaesthesia oral [Not Recovered/Not Resolved]
  - Oral discomfort [Unknown]
  - Product dose omission issue [Unknown]
  - Oral discomfort [Unknown]
  - Oesophageal disorder [Unknown]

NARRATIVE: CASE EVENT DATE: 20240913
